FAERS Safety Report 13580588 (Version 1)
Quarter: 2017Q2

REPORT INFORMATION
  Report Type: Spontaneous
  Country: US (occurrence: US)
  Receive Date: 20170525
  Receipt Date: 20170525
  Transmission Date: 20170830
  Serious: Yes (Other)
  Sender: FDA-Public Use
  Company Number: US-ASTRAZENECA-2017SE53585

PATIENT
  Age: 43 Year
  Sex: Male

DRUGS (3)
  1. MEROPENEM. [Suspect]
     Active Substance: MEROPENEM
     Indication: PULMONARY CAVITATION
     Route: 042
  2. TRIMETHOPRIM-SULFAMETHOXAZOLE [Suspect]
     Active Substance: SULFAMETHOXAZOLE\TRIMETHOPRIM
     Indication: PULMONARY CAVITATION
     Route: 042
  3. PENICILLIN G [Suspect]
     Active Substance: PENICILLIN G
     Indication: PULMONARY CAVITATION
     Route: 042

REACTIONS (3)
  - Fluid overload [Unknown]
  - Partial seizures [Unknown]
  - Thrombocytopenia [Unknown]
